FAERS Safety Report 11128632 (Version 1)
Quarter: 2015Q2

REPORT INFORMATION
  Report Type: Spontaneous
  Country: GB (occurrence: None)
  Receive Date: 20150519
  Receipt Date: 20150519
  Transmission Date: 20150821
  Serious: Yes (Hospitalization, Other)
  Sender: FDA-Public Use
  Company Number: 2015-11283

PATIENT
  Age: 71 Year
  Sex: Male

DRUGS (3)
  1. EYLEA [Suspect]
     Active Substance: AFLIBERCEPT
     Indication: NEOVASCULAR AGE-RELATED MACULAR DEGENERATION
     Route: 031
     Dates: start: 20150306, end: 20150306
  2. CANDESARTAN [Concomitant]
     Active Substance: CANDESARTAN
  3. DIPROBASE (MINERAL OIL, PETROLATUM [Concomitant]

REACTIONS (5)
  - Eye infection staphylococcal [None]
  - Photophobia [None]
  - Visual impairment [None]
  - Endophthalmitis [None]
  - Eye pain [None]

NARRATIVE: CASE EVENT DATE: 20150314
